FAERS Safety Report 18992878 (Version 1)
Quarter: 2021Q1

REPORT INFORMATION
  Report Type: Other
  Country: GB (occurrence: GB)
  Receive Date: 20210310
  Receipt Date: 20210310
  Transmission Date: 20210420
  Serious: Yes (Other)
  Sender: FDA-Public Use
  Company Number: GB-B.BRAUN MEDICAL INC.-2107821

PATIENT
  Age: 38 Year
  Sex: Female

DRUGS (5)
  1. AMANTADINE HYDROCHLORIDE. [Concomitant]
     Active Substance: AMANTADINE HYDROCHLORIDE
  2. CAFFEINE. [Concomitant]
     Active Substance: CAFFEINE
  3. CHLORPHENAMINE [Concomitant]
     Active Substance: CHLORPHENIRAMINE MALEATE
  4. IV ACETAMINOPHEN [Suspect]
     Active Substance: ACETAMINOPHEN
     Indication: FATIGUE
  5. TERIFLUNOMIDE. [Concomitant]
     Active Substance: TERIFLUNOMIDE

REACTIONS (2)
  - Livedo reticularis [None]
  - Lupus vulgaris [None]
